FAERS Safety Report 22587731 (Version 1)
Quarter: 2023Q2

REPORT INFORMATION
  Report Type: Spontaneous
  Country: IT (occurrence: IT)
  Receive Date: 20230612
  Receipt Date: 20230612
  Transmission Date: 20230722
  Serious: Yes (Hospitalization)
  Sender: FDA-Public Use
  Company Number: IT-MINISAL02-927929

PATIENT
  Age: 60 Year
  Sex: Male

DRUGS (3)
  1. METFORMIN [Suspect]
     Active Substance: METFORMIN HYDROCHLORIDE
     Indication: Type 2 diabetes mellitus
     Dosage: UNK(DOSAGE: 1700UNIT OF MEASUREMENT: MILLIGRAMS FREQUENCY OF ADMINISTRATION: DAILY ROUTE OF ADMINIST
     Route: 048
     Dates: start: 20190819
  2. VALSARTAN [Suspect]
     Active Substance: VALSARTAN
     Indication: Hypertension
     Dosage: UNK(DOSAGE: 92.5UNIT OF MEASUREMENT: MILLIGRAMS FREQUENCY OF ADMINISTRATION: DAILY ROUTE OF ADMINIST
     Route: 048
     Dates: start: 20230223, end: 20230524
  3. TRULICITY [Concomitant]
     Active Substance: DULAGLUTIDE
     Indication: Product used for unknown indication
     Dosage: UNK
     Route: 065

REACTIONS (3)
  - Dehydration [Recovered/Resolved]
  - Chest pain [Recovered/Resolved]
  - Tachycardia [Recovered/Resolved]

NARRATIVE: CASE EVENT DATE: 20230524
